FAERS Safety Report 22101686 (Version 4)
Quarter: 2023Q4

REPORT INFORMATION
  Report Type: Spontaneous
  Country: US (occurrence: US)
  Receive Date: 20230316
  Receipt Date: 20231117
  Transmission Date: 20240109
  Serious: Yes (Other)
  Sender: FDA-Public Use
  Company Number: US-JNJFOC-20230321732

PATIENT
  Sex: Male

DRUGS (6)
  1. TYLENOL EXTRA STRENGTH [Suspect]
     Active Substance: ACETAMINOPHEN
     Indication: Pain management
     Dosage: THE PATIENTS MOTHER TOOK TYLENOL EXTRA STRENGTH GEL CAPS 500 MG, BOTTLE OR PACKAGING SIZE (I.E., NU
     Route: 064
     Dates: start: 201803, end: 201809
  2. TYLENOL EXTRA STRENGTH [Suspect]
     Active Substance: ACETAMINOPHEN
     Indication: Therapeutic procedure
  3. VITAFOL [FOLIC ACID] [Concomitant]
     Indication: Supplementation therapy
     Dosage: ROUTINE DAILY
     Route: 065
     Dates: start: 201801, end: 201809
  4. PROMETHAZINE [Concomitant]
     Active Substance: PROMETHAZINE HYDROCHLORIDE
     Indication: Morning sickness
     Route: 065
     Dates: start: 201803, end: 201804
  5. DOXYLAMINE SUCCINATE\PYRIDOXINE HYDROCHLORIDE [Concomitant]
     Active Substance: DOXYLAMINE SUCCINATE\PYRIDOXINE HYDROCHLORIDE
     Indication: Morning sickness
     Route: 065
     Dates: start: 201803, end: 201804
  6. PEPCID [Concomitant]
     Active Substance: FAMOTIDINE
     Indication: Product used for unknown indication
     Route: 048

REACTIONS (3)
  - Autism spectrum disorder [Unknown]
  - Foetal exposure during pregnancy [Unknown]
  - Attention deficit hyperactivity disorder [Unknown]

NARRATIVE: CASE EVENT DATE: 20180101
